FAERS Safety Report 15805093 (Version 1)
Quarter: 2019Q1

REPORT INFORMATION
  Report Type: Report from Study
  Country: ES (occurrence: ES)
  Receive Date: 20190110
  Receipt Date: 20190110
  Transmission Date: 20190417
  Serious: Yes (Hospitalization)
  Sender: FDA-Public Use
  Company Number: ES-TEVA-2019-ES-997028

PATIENT
  Age: 53 Year
  Sex: Male

DRUGS (2)
  1. IBUPROFENO (1769A) [Suspect]
     Active Substance: IBUPROFEN
     Dates: start: 20170611, end: 20170611
  2. RAMIPRIL 2,5 MG COMPRIMIDO [Suspect]
     Active Substance: RAMIPRIL
     Dates: start: 20170611, end: 20170611

REACTIONS (1)
  - Lip oedema [Recovered/Resolved]

NARRATIVE: CASE EVENT DATE: 20170611
